FAERS Safety Report 17460294 (Version 8)
Quarter: 2022Q1

REPORT INFORMATION
  Report Type: Spontaneous
  Country: US (occurrence: US)
  Receive Date: 20200226
  Receipt Date: 20220207
  Transmission Date: 20220423
  Serious: No
  Sender: FDA-Public Use
  Company Number: US-PFIZER INC-2020082885

PATIENT
  Age: 68 Year
  Sex: Female

DRUGS (3)
  1. XELJANZ [Suspect]
     Active Substance: TOFACITINIB CITRATE
     Dosage: 5 MG, (TAKE 1 TAB BID ON MON, WED, FRI AND ONE TAB QAM ON TUES, THURS, SAT, SUN)
     Route: 048
  2. XELJANZ [Suspect]
     Active Substance: TOFACITINIB CITRATE
     Dosage: 5 MG, 2X/DAY(XELJANZ 5MG 1 TABLET TWICE DAILY MONDAY,WEDNESDAY AND FRIDAY)
     Route: 048
  3. XELJANZ [Suspect]
     Active Substance: TOFACITINIB CITRATE
     Dosage: 5 MG, 1X/DAY(TAKE 1 TABLET IN THE MORNING ON TUESDAY AND THURSDAY)
     Route: 048

REACTIONS (3)
  - Off label use [Unknown]
  - Blood cholesterol increased [Unknown]
  - Condition aggravated [Unknown]
